FAERS Safety Report 20639276 (Version 2)
Quarter: 2022Q2

REPORT INFORMATION
  Report Type: Spontaneous
  Country: ES (occurrence: ES)
  Receive Date: 20220326
  Receipt Date: 20220412
  Transmission Date: 20220720
  Serious: Yes (Life-Threatening, Hospitalization, Other)
  Sender: FDA-Public Use
  Company Number: ES-Accord-257870

PATIENT
  Age: 15 Year
  Sex: Female
  Weight: 48 kg

DRUGS (8)
  1. METHOTREXATE [Suspect]
     Active Substance: METHOTREXATE
     Indication: B-cell lymphoma stage III
     Dosage: ON THE 18TH DAY OF THE SECOND COPADM CYCLE, DOSE AND CUMULATIVE DOSE: 16 G/M2
  2. DOXORUBICIN [Suspect]
     Active Substance: DOXORUBICIN
     Indication: B-cell lymphoma stage III
     Dosage: ON THE 18TH DAY OF THE SECOND COPADM CYCLE, 60 MG/M2/D X 1 DAY
  3. VINCRISTINE [Suspect]
     Active Substance: VINCRISTINE
     Indication: B-cell lymphoma stage III
     Dosage: ON THE 18TH DAY OF THE SECOND COPADM CYCLE, 2 MG/ M2/D X 1 DAY
  4. CYCLOPHOSPHAMIDE [Suspect]
     Active Substance: CYCLOPHOSPHAMIDE
     Indication: B-cell lymphoma stage III
     Dosage: ON THE 18TH DAY OF THE SECOND COPADM CYCLE
  5. PREDNISONE [Suspect]
     Active Substance: PREDNISONE
     Indication: B-cell lymphoma stage III
     Dosage: ON THE 18TH DAY OF THE SECOND COPADM CYCLE, 60 MG/M^2/D X 5 DAYS
  6. HYDROCORTISONE [Concomitant]
     Active Substance: HYDROCORTISONE
     Indication: Diffuse large B-cell lymphoma stage III
     Dosage: 15 MG X 3 DAYS
     Route: 037
  7. CYTARABINE [Concomitant]
     Active Substance: CYTARABINE
     Indication: Diffuse large B-cell lymphoma stage III
     Dosage: 30 MG X DAYS
     Route: 037
  8. RITUXIMAB [Concomitant]
     Active Substance: RITUXIMAB
     Indication: Diffuse large B-cell lymphoma stage III
     Dosage: 375 MG/M2 /D X 2 DAYS

REACTIONS (8)
  - Neurotoxicity [Recovered/Resolved]
  - Acute kidney injury [Recovered/Resolved]
  - Myelosuppression [Recovered/Resolved]
  - Monoplegia [Recovered/Resolved]
  - Paraesthesia oral [Recovered/Resolved]
  - Facial paralysis [Recovered/Resolved]
  - Hemiplegia [Recovered/Resolved]
  - Monoparesis [Recovered/Resolved]
